FAERS Safety Report 11434146 (Version 1)
Quarter: 2015Q3

REPORT INFORMATION
  Report Type: Report from Study
  Country: US (occurrence: US)
  Receive Date: 20150831
  Receipt Date: 20150831
  Transmission Date: 20151125
  Serious: Yes (Hospitalization)
  Sender: FDA-Public Use
  Company Number: US-BIOGENIDEC-2015BI115733

PATIENT
  Age: 1 Year
  Sex: Male
  Weight: 9 kg

DRUGS (2)
  1. AMICAR [Concomitant]
     Active Substance: AMINOCAPROIC ACID
     Indication: FACTOR IX DEFICIENCY
     Route: 048
     Dates: start: 20150811, end: 20150812
  2. RFIXFC [Suspect]
     Active Substance: EFTRENONACOG ALFA
     Indication: FACTOR IX DEFICIENCY
     Route: 042
     Dates: start: 20150602

REACTIONS (1)
  - Poor venous access [Not Recovered/Not Resolved]

NARRATIVE: CASE EVENT DATE: 20150818
